APPROVED DRUG PRODUCT: ZOLMITRIPTAN
Active Ingredient: ZOLMITRIPTAN
Strength: 5MG
Dosage Form/Route: TABLET;ORAL
Application: A202279 | Product #002 | TE Code: AB
Applicant: JUBILANT GENERICS LTD
Approved: Nov 20, 2014 | RLD: No | RS: No | Type: RX